FAERS Safety Report 20752718 (Version 1)
Quarter: 2022Q2

REPORT INFORMATION
  Report Type: Spontaneous
  Country: US (occurrence: None)
  Receive Date: 20220426
  Receipt Date: 20220426
  Transmission Date: 20220721
  Serious: No
  Sender: FDA-Public Use
  Company Number: US-ROCHE-2910518

PATIENT
  Age: 67 Year
  Sex: Male
  Weight: 120.76 kg

DRUGS (12)
  1. ESBRIET [Suspect]
     Active Substance: PIRFENIDONE
     Indication: Idiopathic pulmonary fibrosis
     Dosage: 267 MG TABLETS THREE TIMES DAILY
     Route: 048
     Dates: start: 20210809, end: 20210904
  2. ATORVASTATIN [Concomitant]
     Active Substance: ATORVASTATIN
     Indication: Blood cholesterol increased
     Route: 048
  3. ATENOLOL [Concomitant]
     Active Substance: ATENOLOL
     Indication: Hypertension
     Route: 048
  4. ASPIRIN [Concomitant]
     Active Substance: ASPIRIN
     Route: 048
  5. ACETAMINOPHEN [Concomitant]
     Active Substance: ACETAMINOPHEN
     Indication: Arthralgia
     Route: 048
  6. HYDROXYZINE [Concomitant]
     Active Substance: HYDROXYZINE HYDROCHLORIDE
     Indication: Anxiety
     Route: 048
     Dates: start: 202105
  7. HYDROXYZINE [Concomitant]
     Active Substance: HYDROXYZINE HYDROCHLORIDE
     Route: 048
     Dates: start: 202105
  8. CYCLOBENZAPRINE [Concomitant]
     Active Substance: CYCLOBENZAPRINE
     Indication: Muscle spasms
     Route: 048
     Dates: start: 20210723
  9. FAMOTIDINE [Concomitant]
     Active Substance: FAMOTIDINE
     Route: 048
  10. ALBUTEROL [Concomitant]
     Active Substance: ALBUTEROL
     Dosage: 2 PUFFS AS NEEDED
     Route: 055
     Dates: start: 20210704
  11. OXYGEN [Concomitant]
     Active Substance: OXYGEN
     Dosage: USES 0.5 - 5 L AS NEEDED DEPENDING ON WHAT ACTIVITY AND OXYGEN LEVELS
     Route: 045
     Dates: start: 2021
  12. CLOBETASOL [Concomitant]
     Active Substance: CLOBETASOL
     Dosage: CAN USE 1-2 TIMES DAILY
     Route: 061
     Dates: start: 202109

REACTIONS (9)
  - Sunburn [Not Recovered/Not Resolved]
  - Rash [Not Recovered/Not Resolved]
  - Gastric disorder [Unknown]
  - Erythema [Recovered/Resolved]
  - Pain [Recovered/Resolved]
  - Burning sensation [Unknown]
  - Skin exfoliation [Not Recovered/Not Resolved]
  - Pruritus [Not Recovered/Not Resolved]
  - Psoriasis [Recovering/Resolving]

NARRATIVE: CASE EVENT DATE: 20210901
